FAERS Safety Report 9332946 (Version 1)
Quarter: 2013Q2

REPORT INFORMATION
  Report Type: Spontaneous
  Country: JP (occurrence: JP)
  Receive Date: 20130606
  Receipt Date: 20130606
  Transmission Date: 20140414
  Serious: Yes (Other)
  Sender: FDA-Public Use
  Company Number: JP-ASTELLAS-2013JP006380

PATIENT
  Age: 13 Year
  Sex: Female
  Weight: 30.9 kg

DRUGS (10)
  1. PROGRAF [Suspect]
     Indication: PROPHYLAXIS AGAINST GRAFT VERSUS HOST DISEASE
     Route: 065
  2. CYTARABINE [Concomitant]
     Indication: LEUKAEMIC INFILTRATION
     Dosage: UNK
     Route: 037
  3. CYTARABINE [Concomitant]
     Indication: CORD BLOOD TRANSPLANT THERAPY
     Dosage: 3 G/M2, QID
     Route: 037
  4. CYTARABINE [Concomitant]
     Dosage: 2 G/M2, UNKNOWN/D
     Route: 065
  5. ETOPOSIDE [Concomitant]
     Indication: LEUKAEMIC INFILTRATION
     Dosage: 100 MG/M2, TID
     Route: 037
  6. IDARUBICIN [Concomitant]
     Indication: LEUKAEMIC INFILTRATION
     Dosage: 10 MG/M2, UID/QD
     Route: 037
  7. PREDNISOLONE [Concomitant]
     Dosage: 1 MG/KG, UNKNOWN/D
     Route: 065
  8. FLUDARABINE [Concomitant]
     Indication: CORD BLOOD TRANSPLANT THERAPY
     Dosage: 30 MG/M2, UNKNOWN/D
     Route: 065
  9. CYCLOPHOSPHAMIDE [Concomitant]
     Indication: CORD BLOOD TRANSPLANT THERAPY
     Dosage: 10 MG/KG, UNKNOWN/D
     Route: 065
  10. METHOTREXATE [Concomitant]
     Indication: PROPHYLAXIS AGAINST GRAFT VERSUS HOST DISEASE
     Route: 065

REACTIONS (2)
  - Drug ineffective [Unknown]
  - Acute graft versus host disease in skin [Unknown]
